FAERS Safety Report 4515762-2 (Version None)
Quarter: 2004Q4

REPORT INFORMATION
  Report Type: 
  Country: None (occurrence: None)
  Receive Date: 20041129
  Receipt Date: 20041110
  Transmission Date: 20050328
  Serious: Yes (Hospitalization)
  Sender: FDA-Public Use
  Company Number: DSA_25429_2004

PATIENT
  Age: 58 Year
  Sex: Male

DRUGS (5)
  1. MONO-TILDIEM - SLOW RELEASE [Suspect]
     Dosage: DF Q DAY PO
     Route: 048
     Dates: start: 20040823, end: 20040908
  2. DAONIL [Concomitant]
  3. GLUCOPHAGE [Concomitant]
  4. VIOXX [Concomitant]
  5. ZAMUDOL [Concomitant]

REACTIONS (4)
  - C-REACTIVE PROTEIN INCREASED [None]
  - RASH MACULO-PAPULAR [None]
  - RASH PRURITIC [None]
  - SKIN LESION [None]
